FAERS Safety Report 14782428 (Version 3)
Quarter: 2018Q2

REPORT INFORMATION
  Report Type: Spontaneous
  Country: US (occurrence: US)
  Receive Date: 20180420
  Receipt Date: 20180430
  Transmission Date: 20180711
  Serious: No
  Sender: FDA-Public Use
  Company Number: US-PFIZER INC-2018161086

PATIENT
  Age: 59 Year
  Sex: Male
  Weight: 172.3 kg

DRUGS (4)
  1. EUCRISA [Suspect]
     Active Substance: CRISABOROLE
     Indication: EYE PRURITUS
     Dosage: 2.5 G, 1X/DAY
     Route: 061
  2. EUCRISA [Suspect]
     Active Substance: CRISABOROLE
     Indication: DRY EYE
  3. PREDNISONE. [Concomitant]
     Active Substance: PREDNISONE
     Indication: COUGH
     Dosage: 20 MG, UNK (1 PILL FOR 3 DAYS IN A ROW)
  4. PREDNISONE. [Concomitant]
     Active Substance: PREDNISONE
     Indication: WHEEZING

REACTIONS (9)
  - Application site pain [Recovering/Resolving]
  - Middle ear effusion [Unknown]
  - Dry eye [Unknown]
  - Eye irritation [Recovered/Resolved]
  - Malaise [Unknown]
  - Eye disorder [Unknown]
  - Product administered at inappropriate site [Recovering/Resolving]
  - Eye pruritus [Unknown]
  - Hypoacusis [Unknown]

NARRATIVE: CASE EVENT DATE: 20180418
